FAERS Safety Report 7819108-3 (Version None)
Quarter: 2011Q4

REPORT INFORMATION
  Report Type: 
  Country: None (occurrence: None)
  Receive Date: 20111018
  Receipt Date: 20111010
  Transmission Date: 20120403
  Serious: Yes (Other)
  Sender: FDA-Public Use
  Company Number: US-US-EMD SERONO, INC.-7089022

PATIENT
  Sex: Male

DRUGS (2)
  1. TYLENOL-500 [Concomitant]
     Indication: PREMEDICATION
  2. REBIF [Suspect]
     Indication: MULTIPLE SCLEROSIS
     Route: 058
     Dates: start: 20090313

REACTIONS (6)
  - VISION BLURRED [None]
  - MYALGIA [None]
  - LIMB DISCOMFORT [None]
  - TYPE 2 DIABETES MELLITUS [None]
  - ASTHENIA [None]
  - INJECTION SITE HAEMATOMA [None]
